FAERS Safety Report 4377903-X (Version None)
Quarter: 2004Q2

REPORT INFORMATION
  Report Type: 
  Country: None (occurrence: None)
  Receive Date: 20040609
  Receipt Date: 20040603
  Transmission Date: 20050107
  Serious: Yes (Death)
  Sender: FDA-Public Use
  Company Number: J081-002-001664

PATIENT
  Age: 75 Year
  Sex: Female
  Weight: 55 kg

DRUGS (4)
  1. ARICEPT [Suspect]
     Indication: DEMENTIA ALZHEIMER'S TYPE
     Dosage: 5 MG, 1 IN 1 D, ORAL
     Route: 048
     Dates: start: 20000101
  2. ENALAPRIL MALEATE [Concomitant]
  3. NORVASC [Concomitant]
  4. DOXAZOSIN MESYLATE [Concomitant]

REACTIONS (2)
  - CARDIAC FAILURE [None]
  - SUDDEN DEATH [None]
